FAERS Safety Report 7480351-7 (Version None)
Quarter: 2011Q2

REPORT INFORMATION
  Report Type: 
  Country: None (occurrence: None)
  Receive Date: 20110504
  Receipt Date: 20110419
  Transmission Date: 20111010
  Serious: Yes (Other)
  Sender: FDA-Public Use
  Company Number: IPC201104-000683

PATIENT
  Age: 73 Year
  Sex: Male

DRUGS (5)
  1. FUROSEMIDE [Suspect]
     Dosage: 20 MG TWICE A DAY
  2. HYDROCHLOROTHIAZIDE [Suspect]
     Dosage: 25 MG
  3. AMLODIPINE [Suspect]
     Dosage: 5 MG DAILY
  4. LOSARTAN [Suspect]
     Dosage: 50 MG DAILY
  5. METOPROLOL TARTRATE [Suspect]
     Dosage: 50 MG TWICVE A DAY

REACTIONS (3)
  - MULTIPLE-DRUG RESISTANCE [None]
  - GLOMERULAR FILTRATION RATE DECREASED [None]
  - OEDEMA PERIPHERAL [None]
